FAERS Safety Report 6292139-3 (Version None)
Quarter: 2009Q3

REPORT INFORMATION
  Report Type: 
  Country: None (occurrence: None)
  Receive Date: 20090731
  Receipt Date: 20090724
  Transmission Date: 20100115
  Serious: Yes (Other)
  Sender: FDA-Public Use
  Company Number: US-JNJFOC-20090708472

PATIENT
  Age: 3 Year
  Sex: Male
  Weight: 15.88 kg

DRUGS (1)
  1. CHILDRENS TYLENOL PLUS MULTI-SYMPTOM COLD GRAPE [Suspect]
     Indication: ACCIDENTAL EXPOSURE

REACTIONS (3)
  - ACCIDENTAL DRUG INTAKE BY CHILD [None]
  - DIARRHOEA [None]
  - PALPITATIONS [None]
